FAERS Safety Report 8972937 (Version 1)
Quarter: 2012Q4

REPORT INFORMATION
  Report Type: 
  Country: US (occurrence: US)
  Receive Date: 20121218
  Receipt Date: 20121218
  Transmission Date: 20130627
  Serious: No
  Sender: FDA-Public Use
  Company Number: US-BRISTOL-MYERS SQUIBB COMPANY-16453524

PATIENT
  Age: 64 Year
  Sex: Female
  Weight: 81.63 kg

DRUGS (2)
  1. ABILIFY [Suspect]
     Indication: DEPRESSION
     Dosage: Dose 5mg
1K69954A
     Dates: start: 20120131
  2. WELLBUTRIN [Suspect]
     Indication: DEPRESSION

REACTIONS (2)
  - Pain [Unknown]
  - Depression [Unknown]
